FAERS Safety Report 9839096 (Version 1)
Quarter: 2014Q1

REPORT INFORMATION
  Report Type: Spontaneous
  Country: US (occurrence: US)
  Receive Date: 20140123
  Receipt Date: 20140123
  Transmission Date: 20141002
  Serious: Yes (Hospitalization, Other)
  Sender: FDA-Public Use
  Company Number: US-MPIJNJ-2014MPI000211

PATIENT
  Age: 64 Year
  Sex: Male

DRUGS (21)
  1. VELCADE [Suspect]
  2. POMALIDOMIDE [Suspect]
     Dosage: 4 MG, 1 IN 1 DAY
     Route: 048
     Dates: start: 201312
  3. ZOMETA [Concomitant]
     Dosage: 4 MG, 1 IN 4 WK
  4. ACYCLOVIR                          /00587301/ [Concomitant]
     Indication: PRODUCT USED FOR UNKNOWN INDICATION
     Dosage: 400 MG,
     Route: 048
  5. AMLODIPINE [Concomitant]
     Indication: PRODUCT USED FOR UNKNOWN INDICATION
     Dosage: 10 MG, UNK
     Route: 048
  6. ATIVAN [Concomitant]
     Indication: PRODUCT USED FOR UNKNOWN INDICATION
     Dosage: 0.5 MG, UNK
     Route: 048
  7. CITALOPRAM [Concomitant]
     Indication: PRODUCT USED FOR UNKNOWN INDICATION
     Dosage: 20 MG, UNK
     Route: 048
  8. CLONAZEPAM [Concomitant]
     Indication: PRODUCT USED FOR UNKNOWN INDICATION
     Dosage: 0.5 MG, UNK
     Route: 048
  9. FINASTERIDE [Concomitant]
     Indication: PRODUCT USED FOR UNKNOWN INDICATION
     Dosage: 5 MG, UNK
     Route: 048
  10. LISINOPRIL [Concomitant]
     Indication: PRODUCT USED FOR UNKNOWN INDICATION
     Dosage: 10 MG, UNK
     Route: 048
  11. LORAZEPAM [Concomitant]
     Indication: PRODUCT USED FOR UNKNOWN INDICATION
     Dosage: 1 MG, UNK
     Route: 048
  12. OXYBUTYNIN CHLORIDE [Concomitant]
     Indication: PRODUCT USED FOR UNKNOWN INDICATION
     Dosage: 1 MG, 1 IN 24 HR
     Route: 048
  13. PROCHLORPERAZINE MALEATE [Concomitant]
     Indication: PRODUCT USED FOR UNKNOWN INDICATION
     Dosage: 10 MG, UNK
     Route: 048
  14. RISPERDAL [Concomitant]
     Indication: PRODUCT USED FOR UNKNOWN INDICATION
     Dosage: 1 MG, UNK
     Route: 048
  15. DECADRON                           /00016001/ [Concomitant]
     Indication: PLASMA CELL MYELOMA
     Dosage: 40 MG, WEEKLY
     Dates: start: 201005, end: 201105
  16. DECADRON                           /00016001/ [Concomitant]
     Dosage: 20 MG, WEEKLY
     Dates: start: 201308
  17. DECADRON                           /00016001/ [Concomitant]
     Dosage: UNK
     Dates: start: 200705, end: 20070725
  18. DECADRON                           /00016001/ [Concomitant]
     Dosage: UNK
     Dates: start: 20070625, end: 20071227
  19. DECADRON                           /00016001/ [Concomitant]
     Dosage: UNK
     Dates: start: 20090105, end: 20100114
  20. DECADRON                           /00016001/ [Concomitant]
     Dosage: UNK
     Dates: start: 201312
  21. DECADRON                           /00016001/ [Concomitant]
     Dosage: UNK

REACTIONS (6)
  - Soft tissue mass [Unknown]
  - Pyrexia [Unknown]
  - Platelet count decreased [Unknown]
  - Plasma cell myeloma [Unknown]
  - Pruritus [Unknown]
  - Fatigue [Unknown]
